FAERS Safety Report 7603077-5 (Version None)
Quarter: 2011Q3

REPORT INFORMATION
  Report Type: 
  Country: None (occurrence: None)
  Receive Date: 20110712
  Receipt Date: 20110705
  Transmission Date: 20111222
  Serious: Yes (Other)
  Sender: FDA-Public Use
  Company Number: JP-BRISTOL-MYERS SQUIBB COMPANY-15845126

PATIENT
  Age: 51 Year
  Sex: Female

DRUGS (3)
  1. PARAPLATIN [Suspect]
     Indication: OVARIAN CANCER
     Route: 041
     Dates: start: 20110204, end: 20110523
  2. METHYCOBAL [Concomitant]
     Route: 048
     Dates: start: 20110204
  3. TAXOL [Suspect]
     Indication: OVARIAN CANCER
     Dosage: INT ON 13JUN11 04FEB2011 TO 23MAY2011
     Route: 041
     Dates: start: 20110204, end: 20110523

REACTIONS (2)
  - INTERSTITIAL LUNG DISEASE [None]
  - BLOOD CREATINE PHOSPHOKINASE INCREASED [None]
